FAERS Safety Report 5555019-4 (Version None)
Quarter: 2007Q4

REPORT INFORMATION
  Report Type: 
  Country: None (occurrence: None)
  Receive Date: 20071213
  Receipt Date: 20071204
  Transmission Date: 20080405
  Serious: Yes (Hospitalization)
  Sender: FDA-Public Use
  Company Number: ES-WYE-H01571907

PATIENT
  Age: 84 Year
  Sex: Male

DRUGS (6)
  1. TRANGOREX [Suspect]
     Indication: ATRIAL FIBRILLATION
     Route: 048
     Dates: end: 20070701
  2. PRAVASTATIN [Concomitant]
     Dosage: 20 MG, FREQUENCY UNSPECIFIED
     Route: 048
  3. OMEPRAZOLE [Concomitant]
     Indication: GASTRITIS PROPHYLAXIS
     Dosage: 10 MG, FREQUENCY UNSPECIFIED
     Route: 048
  4. PROZAC [Concomitant]
     Indication: DEPRESSION
     Dosage: 20 MG, FREQUENCY UNSPECIFIED
     Route: 048
  5. ENALAPRIL [Interacting]
     Indication: RENAL HYPERTENSION
     Route: 048
  6. ACETYLSALICYLIC ACID SRT [Interacting]
     Indication: ACUTE MYOCARDIAL INFARCTION
     Route: 048
     Dates: start: 20050601

REACTIONS (4)
  - BRADYCARDIA [None]
  - DRUG INTERACTION [None]
  - HYPERKALAEMIA [None]
  - RENAL FAILURE ACUTE [None]
